FAERS Safety Report 20389210 (Version 1)
Quarter: 2022Q1

REPORT INFORMATION
  Report Type: Spontaneous
  Country: US (occurrence: US)
  Receive Date: 20220128
  Receipt Date: 20220128
  Transmission Date: 20220423
  Serious: No
  Sender: FDA-Public Use
  Company Number: US-ALLERGAN-2108046US

PATIENT
  Age: 57 Year
  Sex: Female

DRUGS (3)
  1. BOTOX [Suspect]
     Active Substance: ONABOTULINUMTOXINA
     Indication: Migraine
     Dosage: 195 UNITS, SINGLE
     Dates: start: 20201106, end: 20201106
  2. BOTOX [Suspect]
     Active Substance: ONABOTULINUMTOXINA
     Dosage: 155 UNITS, SINGLE
  3. TYLENOL                            /00020001/ [Concomitant]
     Indication: Pain
     Dosage: UNK, PRN
     Route: 048

REACTIONS (32)
  - Migraine [Not Recovered/Not Resolved]
  - Constipation [Not Recovered/Not Resolved]
  - Dyspepsia [Not Recovered/Not Resolved]
  - Hyperacusis [Not Recovered/Not Resolved]
  - Ocular discomfort [Not Recovered/Not Resolved]
  - Chest discomfort [Not Recovered/Not Resolved]
  - Eye pruritus [Not Recovered/Not Resolved]
  - Palpitations [Not Recovered/Not Resolved]
  - Respiratory tract congestion [Not Recovered/Not Resolved]
  - Eye discharge [Not Recovered/Not Resolved]
  - Influenza [Not Recovered/Not Resolved]
  - Injection site mass [Not Recovered/Not Resolved]
  - Sensation of foreign body [Not Recovered/Not Resolved]
  - Paraesthesia [Not Recovered/Not Resolved]
  - Blood potassium decreased [Not Recovered/Not Resolved]
  - Fatigue [Not Recovered/Not Resolved]
  - Dizziness [Not Recovered/Not Resolved]
  - Muscle tightness [Recovering/Resolving]
  - Pain [Not Recovered/Not Resolved]
  - Lacrimation increased [Not Recovered/Not Resolved]
  - Pruritus [Not Recovered/Not Resolved]
  - Injection site hypoaesthesia [Not Recovered/Not Resolved]
  - Diarrhoea [Not Recovered/Not Resolved]
  - Dry eye [Not Recovered/Not Resolved]
  - Myalgia [Recovering/Resolving]
  - Hyperhidrosis [Not Recovered/Not Resolved]
  - Vision blurred [Not Recovered/Not Resolved]
  - Headache [Not Recovered/Not Resolved]
  - Muscle spasms [Not Recovered/Not Resolved]
  - Swelling [Not Recovered/Not Resolved]
  - Photophobia [Not Recovered/Not Resolved]
  - Drug ineffective [Unknown]

NARRATIVE: CASE EVENT DATE: 20201106
